FAERS Safety Report 7270931-6 (Version None)
Quarter: 2011Q1

REPORT INFORMATION
  Report Type: 
  Country: None (occurrence: None)
  Receive Date: 20110202
  Receipt Date: 20110118
  Transmission Date: 20110831
  Serious: Yes (Other)
  Sender: FDA-Public Use
  Company Number: CH-CELGENEUS-151-21880-11011652

PATIENT
  Sex: Male

DRUGS (1)
  1. REVLIMID [Suspect]
     Indication: MULTIPLE MYELOMA
     Route: 048
     Dates: start: 20100401, end: 20101001

REACTIONS (5)
  - NEUROPATHY PERIPHERAL [None]
  - RENAL FAILURE [None]
  - DEEP VEIN THROMBOSIS [None]
  - POLYNEUROPATHY [None]
  - DIABETES MELLITUS [None]
